FAERS Safety Report 18802069 (Version 1)
Quarter: 2021Q1

REPORT INFORMATION
  Report Type: Spontaneous
  Country: RU (occurrence: RU)
  Receive Date: 20210128
  Receipt Date: 20210128
  Transmission Date: 20210419
  Serious: Yes (Other)
  Sender: FDA-Public Use
  Company Number: RU-GLAXOSMITHKLINE-RU2021EME015143

PATIENT
  Sex: Female

DRUGS (1)
  1. RELVAR ELLIPTA [Suspect]
     Active Substance: FLUTICASONE FUROATE\VILANTEROL TRIFENATATE
     Indication: ASTHMA
     Dosage: UNK (184/22 ?G/DOSE)

REACTIONS (4)
  - Chest discomfort [Recovering/Resolving]
  - Spinal pain [Recovering/Resolving]
  - Arrhythmia [Recovering/Resolving]
  - General physical health deterioration [Recovering/Resolving]
